FAERS Safety Report 6600889-1 (Version None)
Quarter: 2010Q1

REPORT INFORMATION
  Report Type: 
  Country: None (occurrence: None)
  Receive Date: 20100225
  Receipt Date: 20100119
  Transmission Date: 20100710
  Serious: Yes (Disabling)
  Sender: FDA-Public Use
  Company Number: A0840281A

PATIENT
  Age: 26 Year
  Sex: Male

DRUGS (6)
  1. LAMICTAL CD [Suspect]
     Dosage: 100MG PER DAY
     Route: 048
     Dates: start: 20090114, end: 20100115
  2. LAMICTAL CD [Suspect]
     Dosage: 25MG PER DAY
     Dates: start: 20091229
  3. TOPAMAX [Concomitant]
  4. CELEXA [Concomitant]
  5. SEROQUEL [Concomitant]
  6. KLONOPIN [Concomitant]

REACTIONS (1)
  - RASH [None]
